FAERS Safety Report 4526885-6 (Version None)
Quarter: 2004Q4

REPORT INFORMATION
  Report Type: 
  Country: None (occurrence: None)
  Receive Date: 20041213
  Receipt Date: 20041129
  Transmission Date: 20050328
  Serious: No
  Sender: FDA-Public Use
  Company Number: 2004GB02894

PATIENT
  Age: 79 Year
  Sex: Male
  Weight: 86 kg

DRUGS (11)
  1. CRESTOR [Suspect]
     Indication: HYPERCHOLESTEROLAEMIA
     Dosage: 10 MG PO
     Route: 048
     Dates: start: 20041020, end: 20041021
  2. CANDESARTAN [Concomitant]
  3. ATORVASTATIN [Concomitant]
  4. BISOPROLOL FUMARATE [Concomitant]
  5. PANTOPRAZOLE [Concomitant]
  6. TOLTERODINE [Concomitant]
  7. BENDROFLUAZIDE [Concomitant]
  8. GAVISCON [Concomitant]
  9. QUININE [Concomitant]
  10. LEVOBUNOLOL [Concomitant]
  11. CYCLOPENTOLATE HCL [Concomitant]

REACTIONS (2)
  - FEELING ABNORMAL [None]
  - MYALGIA [None]
